FAERS Safety Report 5884347-8 (Version None)
Quarter: 2008Q3

REPORT INFORMATION
  Report Type: 
  Country: None (occurrence: None)
  Receive Date: 20080915
  Receipt Date: 20080908
  Transmission Date: 20090109
  Serious: Yes (Death)
  Sender: FDA-Public Use
  Company Number: IT-AMGEN-US304655

PATIENT
  Sex: Male

DRUGS (1)
  1. ENBREL [Suspect]
     Indication: PSORIASIS
     Dosage: 50 MG WEEKLY
     Route: 058
     Dates: start: 20080123, end: 20080514

REACTIONS (2)
  - COMPLETED SUICIDE [None]
  - POISONING [None]
